FAERS Safety Report 24946205 (Version 1)
Quarter: 2025Q1

REPORT INFORMATION
  Report Type: Spontaneous
  Country: DE (occurrence: DE)
  Receive Date: 20250210
  Receipt Date: 20250210
  Transmission Date: 20250408
  Serious: Yes (Other)
  Sender: ALKEM
  Company Number: DE-ALKEM LABORATORIES LIMITED-DE-ALKEM-2024-17363

PATIENT
  Age: 32 Year
  Sex: Male

DRUGS (14)
  1. LINEZOLID [Suspect]
     Active Substance: LINEZOLID
     Indication: Tuberculosis
     Route: 065
  2. LINEZOLID [Suspect]
     Active Substance: LINEZOLID
     Route: 065
  3. LINEZOLID [Suspect]
     Active Substance: LINEZOLID
     Route: 065
  4. LINEZOLID [Suspect]
     Active Substance: LINEZOLID
     Route: 065
  5. LINEZOLID [Suspect]
     Active Substance: LINEZOLID
     Route: 065
  6. LINEZOLID [Suspect]
     Active Substance: LINEZOLID
     Route: 065
  7. BEDAQUILINE [Suspect]
     Active Substance: BEDAQUILINE
     Indication: Tuberculosis
     Dosage: 400 MILLIGRAM, QD
     Route: 048
  8. BEDAQUILINE [Suspect]
     Active Substance: BEDAQUILINE
     Dosage: 100 MILLIGRAM, QD
     Route: 048
  9. BEDAQUILINE [Suspect]
     Active Substance: BEDAQUILINE
     Route: 048
  10. BEDAQUILINE [Suspect]
     Active Substance: BEDAQUILINE
     Route: 048
  11. BEDAQUILINE [Suspect]
     Active Substance: BEDAQUILINE
     Route: 048
  12. CLOFAZIMINE [Suspect]
     Active Substance: CLOFAZIMINE
     Indication: Tuberculosis
     Route: 065
  13. PARA-AMINOSALICYLIC ACID [Suspect]
     Active Substance: AMINOSALICYLIC ACID
     Indication: Tuberculosis
     Route: 065
  14. PRETOMANID [Suspect]
     Active Substance: PRETOMANID
     Indication: Tuberculosis
     Dosage: 200 MILLIGRAM, QD (EVERY 1 DAY)
     Route: 065

REACTIONS (1)
  - Thrombocytopenia [Recovered/Resolved]
